FAERS Safety Report 18435308 (Version 2)
Quarter: 2021Q2

REPORT INFORMATION
  Report Type: Other
  Country: DE (occurrence: DE)
  Receive Date: 20201027
  Receipt Date: 20210421
  Transmission Date: 20210717
  Serious: Yes (Hospitalization, Other)
  Sender: FDA-Public Use
  Company Number: DE-ROCHE-2700450

PATIENT
  Age: 43 Year
  Sex: Female

DRUGS (5)
  1. L?THYROXIN [Concomitant]
     Active Substance: LEVOTHYROXINE SODIUM
  2. VITAMIN A [Concomitant]
     Active Substance: VITAMIN A
  3. OCREVUS [Suspect]
     Active Substance: OCRELIZUMAB
     Indication: RELAPSING-REMITTING MULTIPLE SCLEROSIS
     Dosage: START DATE: 29/APR/2019
     Route: 042
  4. OCREVUS [Suspect]
     Active Substance: OCRELIZUMAB
     Route: 042
  5. OMEGA 3 [Concomitant]
     Active Substance: OMEGA-3 FATTY ACIDS

REACTIONS (11)
  - Back pain [Recovered/Resolved]
  - Magnetic resonance imaging abnormal [Unknown]
  - Pain [Not Recovered/Not Resolved]
  - Hypertension [Unknown]
  - Thrombophlebitis [Recovered/Resolved]
  - Multiple sclerosis relapse [Recovered/Resolved]
  - Catheter site infection [Recovered/Resolved]
  - Mental disorder [Recovering/Resolving]
  - Sepsis [Recovered/Resolved]
  - Micturition disorder [Recovered/Resolved]
  - Intervertebral disc protrusion [Unknown]

NARRATIVE: CASE EVENT DATE: 2019
